FAERS Safety Report 23406819 (Version 2)
Quarter: 2024Q1

REPORT INFORMATION
  Report Type: Spontaneous
  Country: JP (occurrence: JP)
  Receive Date: 20240116
  Receipt Date: 20240214
  Transmission Date: 20240410
  Serious: Yes (Other)
  Sender: FDA-Public Use
  Company Number: JP-MYLANLABS-2024M1002505

PATIENT
  Age: 57 Year
  Sex: Male
  Weight: 67.2 kg

DRUGS (17)
  1. CARBOPLATIN [Suspect]
     Active Substance: CARBOPLATIN
     Indication: Head and neck cancer
     Dosage: 230 MILLIGRAM, QD
     Route: 042
     Dates: start: 20231114, end: 20231114
  2. CARBOPLATIN [Suspect]
     Active Substance: CARBOPLATIN
     Dosage: 210 MILLIGRAM, QD
     Route: 042
     Dates: start: 20231121, end: 20231121
  3. PACLITAXEL [Suspect]
     Active Substance: PACLITAXEL
     Indication: Head and neck cancer
     Dosage: 180 MILLIGRAM, QD
     Route: 042
     Dates: start: 20231114, end: 20231114
  4. PACLITAXEL [Suspect]
     Active Substance: PACLITAXEL
     Dosage: 170 MILLIGRAM, QD
     Route: 042
     Dates: start: 20231121, end: 20231121
  5. ERBITUX [Suspect]
     Active Substance: CETUXIMAB
     Indication: Head and neck cancer
     Dosage: 730 MILLIGRAM, QD
     Route: 042
     Dates: start: 20231114, end: 20231114
  6. ERBITUX [Suspect]
     Active Substance: CETUXIMAB
     Dosage: 440 MILLIGRAM, QD
     Route: 042
     Dates: start: 20231121, end: 20231121
  7. ERBITUX [Suspect]
     Active Substance: CETUXIMAB
     Dosage: 7440 MILLIGRAM, QD
     Route: 042
     Dates: start: 20231128, end: 20231128
  8. GRANISETRON [Suspect]
     Active Substance: GRANISETRON
     Indication: Product used for unknown indication
     Dosage: UNK MILLIGRAM
     Route: 042
  9. DEXAMETHASONE SODIUM PHOSPHATE [Concomitant]
     Active Substance: DEXAMETHASONE PHOSPHATE\DEXAMETHASONE SODIUM PHOSPHATE
     Indication: Product used for unknown indication
     Dosage: UNK
     Route: 065
  10. DECADRON [Concomitant]
     Active Substance: DEXAMETHASONE
     Indication: Product used for unknown indication
     Dosage: UNK
     Route: 048
  11. POLARAMINE [Concomitant]
     Active Substance: DEXCHLORPHENIRAMINE MALEATE
     Indication: Product used for unknown indication
     Dosage: UNK
     Route: 065
  12. FAMOTIDINE [Concomitant]
     Active Substance: FAMOTIDINE
     Indication: Product used for unknown indication
     Dosage: UNK
     Route: 042
  13. BISOPROLOL FUMARATE [Concomitant]
     Active Substance: BISOPROLOL FUMARATE
     Indication: Product used for unknown indication
     Dosage: UNK
     Route: 048
  14. AZILSARTAN KAMEDOXOMIL [Concomitant]
     Active Substance: AZILSARTAN KAMEDOXOMIL
     Indication: Product used for unknown indication
     Dosage: UNK
     Route: 048
  15. AMLODIPINE [Concomitant]
     Active Substance: AMLODIPINE BESYLATE
     Indication: Product used for unknown indication
     Dosage: UNK
     Route: 048
  16. ACETAMINOPHEN [Concomitant]
     Active Substance: ACETAMINOPHEN
     Indication: Product used for unknown indication
     Dosage: UNK
     Route: 048
  17. MINOCYCLINE HYDROCHLORIDE [Concomitant]
     Active Substance: MINOCYCLINE HYDROCHLORIDE
     Indication: Product used for unknown indication
     Dosage: UNK
     Route: 048

REACTIONS (2)
  - Constipation [Recovering/Resolving]
  - Urinary tract obstruction [Recovering/Resolving]

NARRATIVE: CASE EVENT DATE: 20231115
